FAERS Safety Report 5983980-2 (Version None)
Quarter: 2008Q4

REPORT INFORMATION
  Report Type: 
  Country: None (occurrence: None)
  Receive Date: 20081208
  Receipt Date: 20081201
  Transmission Date: 20090506
  Serious: Yes (Hospitalization)
  Sender: FDA-Public Use
  Company Number: IT-ROCHE-600301

PATIENT
  Sex: Male

DRUGS (4)
  1. XELODA [Suspect]
     Dosage: DOSE: 6 X CYCLE
     Route: 048
     Dates: start: 20081108, end: 20081110
  2. AVASTIN [Suspect]
     Dosage: FREQUENCY: PER CYCLE
     Route: 042
     Dates: start: 20070101, end: 20081031
  3. ASPIRIN [Concomitant]
     Indication: ISCHAEMIC HEART DISEASE PROPHYLAXIS
     Route: 048
  4. ALTIAZEM [Concomitant]
     Indication: ISCHAEMIC HEART DISEASE PROPHYLAXIS
     Route: 048

REACTIONS (1)
  - PERICARDITIS [None]
